FAERS Safety Report 9153408 (Version 1)
Quarter: 2013Q1

REPORT INFORMATION
  Report Type: Spontaneous
  Country: US (occurrence: None)
  Receive Date: 20130304
  Receipt Date: 20130304
  Transmission Date: 20140127
  Serious: Yes (Other)
  Sender: FDA-Public Use
  Company Number: None

PATIENT
  Age: 26 Year
  Sex: Female
  Weight: 99.02 kg

DRUGS (1)
  1. LEVOTHYROXINE [Suspect]

REACTIONS (2)
  - Fatigue [None]
  - Therapy change [None]
